FAERS Safety Report 17020843 (Version 1)
Quarter: 2019Q4

REPORT INFORMATION
  Report Type: Spontaneous
  Country: DK (occurrence: DK)
  Receive Date: 20191112
  Receipt Date: 20191112
  Transmission Date: 20200122
  Serious: Yes (Hospitalization)
  Sender: FDA-Public Use
  Company Number: DK-B.I. PHARMACEUTICALS,INC./RIDGEFIELD-2019-12-113405

PATIENT
  Age: 76 Year
  Sex: Female

DRUGS (1)
  1. JARDIANCE [Suspect]
     Active Substance: EMPAGLIFLOZIN
     Indication: TYPE 2 DIABETES MELLITUS
     Dosage: STRENGTH: 10 MG UNCERTAINTY IN RELATION TO START PERIOD
     Route: 048
     Dates: start: 20180802, end: 201910

REACTIONS (4)
  - Pyuria [Unknown]
  - Fungal cystitis [Unknown]
  - Hyperglycaemia [Unknown]
  - Pollakiuria [Unknown]

NARRATIVE: CASE EVENT DATE: 2019
